FAERS Safety Report 6388633 (Version 1)
Quarter: 2020Q3

REPORT INFORMATION
  Report Type: Report from Study
  Country: FR (occurrence: FR)
  Receive Date: 20070326
  Receipt Date: 20070326
  Transmission Date: 20201104
  Serious: Yes (Hospitalization)
  Sender: FDA-Public Use
  Company Number: FR-JNJFOC-20060704997

PATIENT
  Age: 45 Year
  Sex: Male
  Weight: 73 kg

DRUGS (14)
  1. DARUNAVIR [Suspect]
     Active Substance: DARUNAVIR
     Indication: HIV INFECTION
     Dosage: TEMPORARY STOP
     Route: 048
     Dates: start: 20060428, end: 20060719
  2. LOCERYL [Concomitant]
     Route: 061
  3. DARUNAVIR [Suspect]
     Active Substance: DARUNAVIR
     Route: 048
     Dates: start: 20060428, end: 20060719
  4. EPZICOM [Concomitant]
     Active Substance: ABACAVIR SULFATE\LAMIVUDINE
     Indication: HIV INFECTION
     Route: 048
  5. RITONAVIR. [Suspect]
     Active Substance: RITONAVIR
     Route: 048
  6. RITONAVIR. [Suspect]
     Active Substance: RITONAVIR
     Indication: HIV INFECTION
     Route: 048
  7. VIREAD [Concomitant]
     Active Substance: TENOFOVIR DISOPROXIL FUMARATE
     Indication: HIV INFECTION
     Route: 048
  8. RITONAVIR. [Suspect]
     Active Substance: RITONAVIR
     Route: 048
  9. BACTRIM [Concomitant]
     Active Substance: SULFAMETHOXAZOLE\TRIMETHOPRIM
     Indication: ANTIFUNGAL PROPHYLAXIS
     Route: 048
  10. AERIUS (DESLORATADINE) [Concomitant]
     Active Substance: DESLORATADINE
     Indication: SEASONAL ALLERGY
     Route: 054
  11. ETRAVIRINE [Suspect]
     Active Substance: ETRAVIRINE
     Indication: HIV INFECTION
     Dosage: TEMPORARY STOP
     Route: 048
     Dates: start: 20060428, end: 20060719
  12. LEVOTHYROX [Concomitant]
     Active Substance: LEVOTHYROXINE
     Indication: HYPOTHYROIDISM
     Route: 048
  13. ETRAVIRINE [Suspect]
     Active Substance: ETRAVIRINE
     Route: 048
     Dates: start: 20060428, end: 20060719
  14. FUZEON [Concomitant]
     Active Substance: ENFUVIRTIDE
     Indication: HIV INFECTION
     Route: 048

REACTIONS (1)
  - Subdural haematoma [Not Recovered/Not Resolved]

NARRATIVE: CASE EVENT DATE: 20060716
